FAERS Safety Report 5999080-1 (Version None)
Quarter: 2008Q4

REPORT INFORMATION
  Report Type: 
  Country: None (occurrence: None)
  Receive Date: 20081215
  Receipt Date: 20081203
  Transmission Date: 20090506
  Serious: Yes (Disabling)
  Sender: FDA-Public Use
  Company Number: TR-BAYER-200832259GPV

PATIENT
  Age: 46 Year
  Sex: Female
  Weight: 70 kg

DRUGS (3)
  1. BETAFERON [Suspect]
     Indication: MULTIPLE SCLEROSIS
     Dosage: TOTAL DAILY DOSE: 8 MIU
     Route: 058
     Dates: start: 20070501, end: 20081201
  2. CONCOR 5 / BISOPROLOL [Concomitant]
     Dosage: AS USED: 5 MG
     Dates: start: 20081125
  3. EXFORGE / AMLODIPINE BESYLATE [Concomitant]
     Dosage: TOTAL DAILY DOSE: 10 MG
     Dates: start: 20081125

REACTIONS (3)
  - ANXIETY [None]
  - ANXIETY DISORDER [None]
  - DEPRESSION [None]
